FAERS Safety Report 4307504-0 (Version None)
Quarter: 2004Q1

REPORT INFORMATION
  Report Type: 
  Country: None (occurrence: None)
  Receive Date: 20040226
  Receipt Date: 20040216
  Transmission Date: 20041129
  Serious: Yes (Hospitalization)
  Sender: FDA-Public Use
  Company Number: 2004200532GB

PATIENT
  Age: 74 Year
  Sex: Female

DRUGS (9)
  1. DALACIN C (CLINDAMYCIN) SOLUTION, STERILE [Suspect]
     Indication: ARTHRITIS BACTERIAL
     Dosage: 450 MG, DAILY, IV
     Route: 042
     Dates: start: 30021230, end: 20040112
  2. FUSIDIC ACID [Suspect]
     Indication: STAPHYLOCOCCAL INFECTION
     Dosage: 500 MG, BID, ORAL
     Route: 048
     Dates: start: 20031230, end: 20040112
  3. FRUSEMIDE [Concomitant]
  4. DIPYRIDAMOLE [Concomitant]
  5. WARFARIN SODIUM [Concomitant]
  6. DIGOXIN [Concomitant]
  7. CAPTOPRIL [Concomitant]
  8. DOXAZOSIN MESYLATE [Concomitant]
  9. SALBUTAMOL (SALBUTAMOL) [Concomitant]

REACTIONS (3)
  - FEELING HOT [None]
  - RASH ERYTHEMATOUS [None]
  - RASH PRURITIC [None]
